FAERS Safety Report 16669641 (Version 1)
Quarter: 2019Q3

REPORT INFORMATION
  Report Type: Spontaneous
  Country: US (occurrence: US)
  Receive Date: 20190805
  Receipt Date: 20190805
  Transmission Date: 20191004
  Serious: No
  Sender: FDA-Public Use
  Company Number: US-TEVA-2019-US-1086839

PATIENT
  Sex: Female

DRUGS (1)
  1. COPAXONE [Suspect]
     Active Substance: GLATIRAMER ACETATE
     Indication: RELAPSING-REMITTING MULTIPLE SCLEROSIS
     Route: 065
     Dates: start: 201904

REACTIONS (5)
  - Pruritus [Unknown]
  - Anxiety [Unknown]
  - Urticaria [Unknown]
  - Crying [Unknown]
  - Agitation [Unknown]

NARRATIVE: CASE EVENT DATE: 2019
